FAERS Safety Report 8068146-7 (Version None)
Quarter: 2012Q1

REPORT INFORMATION
  Report Type: 
  Country: None (occurrence: None)
  Receive Date: 20120124
  Receipt Date: 20110923
  Transmission Date: 20120608
  Serious: No
  Sender: FDA-Public Use
  Company Number: US-AMGEN-USASP2011049351

PATIENT
  Age: 75 Year
  Sex: Female

DRUGS (7)
  1. VITAMIN D [Concomitant]
     Dosage: 1 IU, UNK
  2. ASPIRIN [Concomitant]
     Dosage: UNK
  3. PROLIA [Suspect]
     Indication: OSTEOPOROSIS POSTMENOPAUSAL
     Dosage: 60 MG, Q6MO
     Dates: start: 20110401
  4. LUCENTIS [Concomitant]
  5. GLUCOSAMINE CHONDROITIN [Concomitant]
  6. PRESERVISION EYE VITAMIN AND MINERAL SUPPL. [Concomitant]
  7. CALTRATE WITH VITAMIN D [Concomitant]
     Dosage: UNK

REACTIONS (1)
  - DERMATITIS [None]
